FAERS Safety Report 6915068-8 (Version None)
Quarter: 2010Q3

REPORT INFORMATION
  Report Type: 
  Country: None (occurrence: None)
  Receive Date: 20100809
  Receipt Date: 20100726
  Transmission Date: 20110219
  Serious: Yes (Hospitalization)
  Sender: FDA-Public Use
  Company Number: SE-MYLANLABS-2010S1013517

PATIENT
  Age: 69 Year
  Sex: Male

DRUGS (17)
  1. LOPERAMIDE [Suspect]
     Indication: GASTROENTERITIS
     Route: 048
     Dates: start: 20100521, end: 20100628
  2. SIMVASTATIN [Suspect]
     Indication: HYPERCHOLESTEROLAEMIA
     Route: 048
     Dates: start: 20090622, end: 20100615
  3. FLUTIDE [Concomitant]
     Indication: PRODUCT USED FOR UNKNOWN INDICATION
  4. FUROSEMID COPYFARM [Concomitant]
     Indication: PRODUCT USED FOR UNKNOWN INDICATION
  5. WARAN [Concomitant]
     Indication: PRODUCT USED FOR UNKNOWN INDICATION
  6. DIGOXIN BIOPHAUSIA [Concomitant]
     Indication: PRODUCT USED FOR UNKNOWN INDICATION
  7. PREDNISOLONE [Concomitant]
     Indication: PRODUCT USED FOR UNKNOWN INDICATION
  8. NATRIUMBIKARBONAT [Concomitant]
     Indication: PRODUCT USED FOR UNKNOWN INDICATION
  9. ETALPHA [Concomitant]
     Indication: PRODUCT USED FOR UNKNOWN INDICATION
  10. SANDIMMUNE [Concomitant]
     Indication: PRODUCT USED FOR UNKNOWN INDICATION
  11. SUSCARD [Concomitant]
     Indication: PRODUCT USED FOR UNKNOWN INDICATION
  12. SOTACOR [Concomitant]
     Indication: PRODUCT USED FOR UNKNOWN INDICATION
  13. MONOKET [Concomitant]
     Indication: PRODUCT USED FOR UNKNOWN INDICATION
  14. PRONAXEN [Concomitant]
     Indication: PRODUCT USED FOR UNKNOWN INDICATION
  15. ALLOPURINOL NORDIC DRUGS [Concomitant]
     Indication: PRODUCT USED FOR UNKNOWN INDICATION
  16. CELLCEPT [Concomitant]
     Indication: PRODUCT USED FOR UNKNOWN INDICATION
  17. NOVORAPID [Concomitant]
     Indication: PRODUCT USED FOR UNKNOWN INDICATION

REACTIONS (1)
  - RHABDOMYOLYSIS [None]
